FAERS Safety Report 24008336 (Version 1)
Quarter: 2024Q2

REPORT INFORMATION
  Report Type: Spontaneous
  Country: GB (occurrence: GB)
  Receive Date: 20240625
  Receipt Date: 20240625
  Transmission Date: 20240716
  Serious: Yes (Life-Threatening, Hospitalization, Other)
  Sender: FDA-Public Use
  Company Number: GB-MLMSERVICE-20240430-PI040973-00034-1

PATIENT
  Age: 11 Month
  Sex: Male

DRUGS (1)
  1. AMIODARONE [Suspect]
     Active Substance: AMIODARONE
     Indication: Product used for unknown indication
     Dosage: UNK, OVER 5 MIN
     Route: 065

REACTIONS (5)
  - Tachycardia [Recovered/Resolved]
  - Pulseless electrical activity [Recovered/Resolved]
  - Shock [Recovered/Resolved]
  - Cardiac arrest [Recovered/Resolved]
  - Incorrect drug administration rate [Recovered/Resolved]
